FAERS Safety Report 20923114 (Version 3)
Quarter: 2022Q3

REPORT INFORMATION
  Report Type: Report from Study
  Country: JP (occurrence: JP)
  Receive Date: 20220607
  Receipt Date: 20220824
  Transmission Date: 20221027
  Serious: Yes (Hospitalization)
  Sender: FDA-Public Use
  Company Number: JP-NOVARTISPH-NVSJ2022JP091233

PATIENT
  Age: 10 Year
  Sex: Female
  Weight: 25.7 kg

DRUGS (15)
  1. ILARIS [Suspect]
     Active Substance: CANAKINUMAB
     Indication: Familial mediterranean fever
     Dosage: 60 MG
     Route: 058
     Dates: start: 20210906
  2. ILARIS [Suspect]
     Active Substance: CANAKINUMAB
     Dosage: 100 MG
     Route: 058
     Dates: start: 20211011
  3. ILARIS [Suspect]
     Active Substance: CANAKINUMAB
     Dosage: 150 MG
     Route: 058
     Dates: start: 20211101
  4. ILARIS [Suspect]
     Active Substance: CANAKINUMAB
     Dosage: 150 MG
     Route: 058
     Dates: start: 20211206, end: 20211206
  5. COLCHICINE [Concomitant]
     Active Substance: COLCHICINE
     Indication: Familial mediterranean fever
     Dosage: 0.3 MG
     Route: 048
     Dates: start: 20210317, end: 20210405
  6. COLCHICINE [Concomitant]
     Active Substance: COLCHICINE
     Dosage: 0.4 MG
     Route: 048
     Dates: start: 20210406, end: 20210427
  7. COLCHICINE [Concomitant]
     Active Substance: COLCHICINE
     Dosage: 0.5 MG
     Route: 048
     Dates: start: 20210428, end: 20210503
  8. COLCHICINE [Concomitant]
     Active Substance: COLCHICINE
     Dosage: 0.6 MG
     Route: 048
     Dates: start: 20210504, end: 20210507
  9. COLCHICINE [Concomitant]
     Active Substance: COLCHICINE
     Dosage: 0.7 MG
     Route: 048
     Dates: start: 20210508, end: 20210510
  10. COLCHICINE [Concomitant]
     Active Substance: COLCHICINE
     Dosage: 0.9 MG
     Route: 048
     Dates: start: 20210511, end: 20210517
  11. COLCHICINE [Concomitant]
     Active Substance: COLCHICINE
     Dosage: 1 MG
     Route: 048
     Dates: start: 20210518, end: 20210703
  12. COLCHICINE [Concomitant]
     Active Substance: COLCHICINE
     Dosage: 1.25 MG
     Route: 048
     Dates: start: 20210704, end: 20210719
  13. COLCHICINE [Concomitant]
     Active Substance: COLCHICINE
     Dosage: 1 MG
     Route: 048
     Dates: start: 20210720, end: 20211017
  14. COLCHICINE [Concomitant]
     Active Substance: COLCHICINE
     Dosage: 0.25 MG
     Route: 048
     Dates: start: 20211126, end: 20211227
  15. MIYA-BM [Concomitant]
     Active Substance: CLOSTRIDIUM BUTYRICUM SPORES STRAIN M-55
     Indication: Product used for unknown indication
     Dosage: UNK
     Route: 048

REACTIONS (4)
  - Ileus paralytic [Recovering/Resolving]
  - Abdominal pain [Recovering/Resolving]
  - Familial mediterranean fever [Unknown]
  - Disease recurrence [Unknown]

NARRATIVE: CASE EVENT DATE: 20210907
